FAERS Safety Report 4318307-5 (Version None)
Quarter: 2004Q1

REPORT INFORMATION
  Report Type: 
  Country: None (occurrence: None)
  Receive Date: 20040315
  Receipt Date: 20031205
  Transmission Date: 20041129
  Serious: No
  Sender: FDA-Public Use
  Company Number: 2003189045US

PATIENT

DRUGS (4)
  1. BEXTRA [Suspect]
     Dosage: 20 MG, QD
     Dates: start: 20030101, end: 20030101
  2. VITAMIN E [Suspect]
  3. TETRACYCLINE [Concomitant]
  4. VITAMINS WITH MINERALS [Concomitant]

REACTIONS (3)
  - POST PROCEDURAL HAEMORRHAGE [None]
  - SKIN DISCOLOURATION [None]
  - SKIN SWELLING [None]
